FAERS Safety Report 24683512 (Version 2)
Quarter: 2024Q4

REPORT INFORMATION
  Report Type: Spontaneous
  Country: US (occurrence: US)
  Receive Date: 20241201
  Receipt Date: 20241216
  Transmission Date: 20250115
  Serious: Yes (Death)
  Sender: BIOGEN
  Company Number: US-BIOGEN-2024BI01292045

PATIENT
  Age: 56 Year
  Sex: Female

DRUGS (6)
  1. TECFIDERA [Suspect]
     Active Substance: DIMETHYL FUMARATE
     Indication: Multiple sclerosis
     Route: 050
     Dates: start: 20190414, end: 20190712
  2. TECFIDERA [Suspect]
     Active Substance: DIMETHYL FUMARATE
     Route: 050
     Dates: start: 20191007, end: 202408
  3. OXYBUTYNIN [Concomitant]
     Active Substance: OXYBUTYNIN
     Indication: Product used for unknown indication
     Route: 050
  4. BACLOFEN [Concomitant]
     Active Substance: BACLOFEN
     Indication: Product used for unknown indication
     Route: 050
  5. GABAPENTIN [Concomitant]
     Active Substance: GABAPENTIN
     Indication: Product used for unknown indication
     Route: 050
  6. NAPROXEN [Concomitant]
     Active Substance: NAPROXEN
     Indication: Product used for unknown indication
     Route: 050

REACTIONS (2)
  - Cardiac arrest [Fatal]
  - Acute myocardial infarction [Fatal]

NARRATIVE: CASE EVENT DATE: 20241123
